FAERS Safety Report 6442059-6 (Version None)
Quarter: 2009Q4

REPORT INFORMATION
  Report Type: 
  Country: None (occurrence: None)
  Receive Date: 20091116
  Receipt Date: 20090605
  Transmission Date: 20100525
  Serious: Yes (Other)
  Sender: FDA-Public Use
  Company Number: PHHY2009BR21770

PATIENT
  Age: 7 Year
  Sex: Female

DRUGS (2)
  1. RITALIN [Suspect]
     Indication: ATTENTION DEFICIT/HYPERACTIVITY DISORDER
     Dosage: 10 MG, UNK
     Route: 048
  2. RITALIN [Suspect]
     Dosage: HALF TABLET

REACTIONS (2)
  - HEADACHE [None]
  - THROMBOCYTOPENIA [None]
